FAERS Safety Report 25520835 (Version 3)
Quarter: 2025Q4

REPORT INFORMATION
  Report Type: Spontaneous
  Country: US (occurrence: US)
  Receive Date: 20250705
  Receipt Date: 20251008
  Transmission Date: 20260118
  Serious: No
  Sender: SANOFI AVENTIS
  Company Number: US-SA-2025SA187958

PATIENT
  Age: 81 Year
  Sex: Female

DRUGS (3)
  1. DUPIXENT [Suspect]
     Active Substance: DUPILUMAB
     Indication: Chronic obstructive pulmonary disease
     Dosage: 300 MG, QOW
     Route: 058
     Dates: start: 20250618
  2. DUPIXENT [Suspect]
     Active Substance: DUPILUMAB
     Indication: Emphysema
  3. DUPIXENT [Suspect]
     Active Substance: DUPILUMAB
     Indication: Bronchitis

REACTIONS (7)
  - Emphysema [Unknown]
  - Condition aggravated [Unknown]
  - Bronchitis [Unknown]
  - Condition aggravated [Unknown]
  - Injection site pain [Recovered/Resolved]
  - Chronic obstructive pulmonary disease [Unknown]
  - Product use in unapproved indication [Unknown]

NARRATIVE: CASE EVENT DATE: 20250101
